FAERS Safety Report 7539380-7 (Version None)
Quarter: 2011Q2

REPORT INFORMATION
  Report Type: 
  Country: None (occurrence: None)
  Receive Date: 20110610
  Receipt Date: 20110603
  Transmission Date: 20111010
  Serious: Yes (Other)
  Sender: FDA-Public Use
  Company Number: US-JNJFOC-20110601829

PATIENT
  Age: 38 Year
  Sex: Male

DRUGS (1)
  1. LEVAQUIN [Suspect]
     Indication: INFECTION
     Route: 048

REACTIONS (2)
  - TENDON RUPTURE [None]
  - JOINT INJURY [None]
